FAERS Safety Report 8915192 (Version 1)
Quarter: 2012Q4

REPORT INFORMATION
  Report Type: 
  Country: FR (occurrence: FR)
  Receive Date: 20121119
  Receipt Date: 20121119
  Transmission Date: 20130627
  Serious: Yes (Hospitalization)
  Sender: FDA-Public Use
  Company Number: FR-ROCHE-1155464

PATIENT
  Age: 61 Year
  Sex: Female

DRUGS (3)
  1. ZELBORAF [Suspect]
     Indication: METASTATIC MALIGNANT MELANOMA
     Route: 048
     Dates: start: 20120418
  2. MUPHORAN [Suspect]
     Indication: METASTATIC MALIGNANT MELANOMA
     Route: 042
     Dates: start: 20120809
  3. MUPHORAN [Suspect]
     Dosage: dose decreased of 25%
     Route: 042
     Dates: start: 20121011

REACTIONS (1)
  - Thrombocytopenic purpura [Recovered/Resolved]
